FAERS Safety Report 9400280 (Version 1)
Quarter: 2013Q3

REPORT INFORMATION
  Report Type: Report from Study
  Country: DE (occurrence: DE)
  Receive Date: 20130715
  Receipt Date: 20130715
  Transmission Date: 20140515
  Serious: Yes (Other)
  Sender: FDA-Public Use
  Company Number: DE-SANOFI-AVENTIS-2013SA067302

PATIENT
  Age: 72 Year
  Sex: Male
  Weight: 91 kg

DRUGS (8)
  1. MULTAQ [Suspect]
     Indication: ATRIAL FIBRILLATION
     Route: 048
     Dates: start: 20120313
  2. METOPROLOL [Concomitant]
  3. BETA BLOCKING AGENTS [Concomitant]
     Dates: start: 199711, end: 201305
  4. SIMVASTATIN [Concomitant]
  5. BIPRETERAX [Concomitant]
  6. INSULIN [Concomitant]
  7. CARMEN [Concomitant]
  8. PHENPROCOUMON [Concomitant]
     Indication: THROMBOSIS PROPHYLAXIS
     Dates: start: 20100606

REACTIONS (2)
  - Chronic myeloid leukaemia [Unknown]
  - Electrocardiogram QT prolonged [Unknown]
